FAERS Safety Report 12797818 (Version 1)
Quarter: 2016Q3

REPORT INFORMATION
  Report Type: Spontaneous
  Country: US (occurrence: US)
  Receive Date: 20160929
  Receipt Date: 20160929
  Transmission Date: 20161109
  Serious: Yes (Death, Other)
  Sender: FDA-Public Use
  Company Number: None

PATIENT
  Age: 81 Year
  Sex: Male
  Weight: 81 kg

DRUGS (1)
  1. PRADAXA [Suspect]
     Active Substance: DABIGATRAN ETEXILATE MESYLATE
     Indication: ATRIAL FIBRILLATION
     Route: 048
     Dates: start: 20120318, end: 20120321

REACTIONS (6)
  - Urticaria [None]
  - Swelling [None]
  - Dysphagia [None]
  - Pruritus [None]
  - Mouth swelling [None]
  - Swelling face [None]

NARRATIVE: CASE EVENT DATE: 20120321
